FAERS Safety Report 9359049 (Version 2)
Quarter: 2013Q2

REPORT INFORMATION
  Report Type: Spontaneous
  Country: US (occurrence: US)
  Receive Date: 20130620
  Receipt Date: 20130620
  Transmission Date: 20140414
  Serious: No
  Sender: FDA-Public Use
  Company Number: US-US-EMD SERONO, INC.-7041785

PATIENT
  Sex: Female

DRUGS (5)
  1. REBIF [Suspect]
     Indication: MULTIPLE SCLEROSIS
     Route: 058
     Dates: start: 20110208
  2. ACADIA [Suspect]
     Indication: BACK PAIN
  3. ACADIA [Suspect]
     Indication: HEADACHE
  4. ZOLOFT [Concomitant]
     Indication: DEPRESSION
  5. TEGRETOL [Concomitant]
     Indication: CONVULSION

REACTIONS (9)
  - Dyspnoea [Not Recovered/Not Resolved]
  - Fall [Unknown]
  - Nausea [Unknown]
  - Oropharyngeal pain [Unknown]
  - Abdominal pain upper [Unknown]
  - Back pain [Not Recovered/Not Resolved]
  - Headache [Not Recovered/Not Resolved]
  - Influenza like illness [Unknown]
  - Injection site erythema [Unknown]
